FAERS Safety Report 7490136-3 (Version None)
Quarter: 2011Q2

REPORT INFORMATION
  Report Type: 
  Country: None (occurrence: None)
  Receive Date: 20110519
  Receipt Date: 20110517
  Transmission Date: 20111010
  Serious: No
  Sender: FDA-Public Use
  Company Number: US-PFIZER INC-2011107234

PATIENT
  Sex: Female
  Weight: 67.12 kg

DRUGS (3)
  1. VITAMIN D [Concomitant]
     Indication: OSTEOPOROSIS
     Dosage: 5000 IU, DAILY
  2. EVISTA [Concomitant]
     Indication: OSTEOPOROSIS
     Dosage: 60 MG, DAILY
  3. CHANTIX [Suspect]
     Indication: SMOKING CESSATION THERAPY
     Dosage: 0.5 MG, DAILY
     Route: 048
     Dates: start: 20110401

REACTIONS (1)
  - NAUSEA [None]
